FAERS Safety Report 11714412 (Version 2)
Quarter: 2015Q4

REPORT INFORMATION
  Report Type: Spontaneous
  Country: CH (occurrence: CH)
  Receive Date: 20151109
  Receipt Date: 20151201
  Transmission Date: 20160304
  Serious: Yes (Hospitalization, Other)
  Sender: FDA-Public Use
  Company Number: CH-TEVA-606186ISR

PATIENT
  Age: 61 Year
  Sex: Male

DRUGS (1)
  1. AMLODIPINE [Suspect]
     Active Substance: AMLODIPINE BESYLATE

REACTIONS (3)
  - Rhabdomyolysis [Unknown]
  - Uraemic encephalopathy [Unknown]
  - Acute kidney injury [Unknown]
